FAERS Safety Report 8054128-8 (Version None)
Quarter: 2012Q1

REPORT INFORMATION
  Report Type: 
  Country: None (occurrence: None)
  Receive Date: 20120118
  Receipt Date: 20120110
  Transmission Date: 20120608
  Serious: Yes (Other)
  Sender: FDA-Public Use
  Company Number: US-JNJFOC-20111006941

PATIENT
  Sex: Male
  Weight: 59.5 kg

DRUGS (6)
  1. PROBIOTICS [Concomitant]
  2. CYCLOSPORINE [Concomitant]
  3. ANTIBIOTICS [Concomitant]
     Indication: INFLAMMATORY BOWEL DISEASE
  4. REMICADE [Suspect]
     Indication: INFLAMMATORY BOWEL DISEASE
     Route: 042
     Dates: start: 20090108
  5. MESALAMINE [Concomitant]
     Route: 048
  6. PREDNISONE [Concomitant]

REACTIONS (1)
  - SYNCOPE [None]
